FAERS Safety Report 8572617-4 (Version None)
Quarter: 2012Q2

REPORT INFORMATION
  Report Type: 
  Country: None (occurrence: None)
  Receive Date: 20120423
  Receipt Date: 20100507
  Transmission Date: 20120825
  Serious: Yes (Hospitalization)
  Sender: FDA-Public Use
  Company Number: PHEH2010US03236

PATIENT
  Age: 29 Year
  Sex: Female
  Weight: 67.1 kg

DRUGS (2)
  1. FOLIC ACID [Concomitant]
  2. EXJADE [Suspect]
     Indication: IRON OVERLOAD
     Dosage: 1250 MG DAILY, ORAL
     Route: 048
     Dates: start: 20090518

REACTIONS (2)
  - SICKLE CELL ANAEMIA WITH CRISIS [None]
  - ANAEMIA [None]
